FAERS Safety Report 6699784-1 (Version None)
Quarter: 2010Q2

REPORT INFORMATION
  Report Type: 
  Country: None (occurrence: None)
  Receive Date: 20100427
  Receipt Date: 20100427
  Transmission Date: 20101027
  Serious: No
  Sender: FDA-Public Use
  Company Number: None

PATIENT

DRUGS (3)
  1. ROLAIDS [Suspect]
     Indication: ABDOMINAL PAIN
     Dosage: USED MONTHS
     Dates: end: 20100101
  2. ROLAIDS [Suspect]
     Indication: DIARRHOEA
     Dosage: USED MONTHS
     Dates: end: 20100101
  3. ASPIRIN [Concomitant]

REACTIONS (4)
  - GASTRIC DISORDER [None]
  - PAIN [None]
  - PAROSMIA [None]
  - PRODUCT QUALITY ISSUE [None]
